FAERS Safety Report 20854711 (Version 2)
Quarter: 2022Q2

REPORT INFORMATION
  Report Type: Other
  Country: GB (occurrence: None)
  Receive Date: 20220520
  Receipt Date: 20220629
  Transmission Date: 20220721
  Serious: Yes (Other)
  Sender: FDA-Public Use
  Company Number: GB-ROCHE-2948971

PATIENT
  Sex: Male

DRUGS (3)
  1. ESBRIET [Suspect]
     Active Substance: PIRFENIDONE
     Indication: Idiopathic pulmonary fibrosis
     Dosage: 9 TABLETS DAILY
     Route: 048
     Dates: start: 20210630
  2. ESBRIET [Suspect]
     Active Substance: PIRFENIDONE
     Dosage: 3 TDS
     Route: 048
     Dates: start: 202106
  3. ESBRIET [Suspect]
     Active Substance: PIRFENIDONE
     Route: 048
     Dates: start: 202106, end: 202205

REACTIONS (6)
  - Spinal fracture [Unknown]
  - Clavicle fracture [Unknown]
  - Fall [Unknown]
  - Pruritus [Unknown]
  - Haemorrhage [Unknown]
  - Skin reaction [Unknown]
